FAERS Safety Report 4354863-9 (Version None)
Quarter: 2004Q2

REPORT INFORMATION
  Report Type: 
  Country: None (occurrence: None)
  Receive Date: 20040507
  Receipt Date: 20040423
  Transmission Date: 20050107
  Serious: Yes (Hospitalization, Other)
  Sender: FDA-Public Use
  Company Number: IT-BRISTOL-MYERS SQUIBB COMPANY-12580312

PATIENT
  Age: 36 Year
  Sex: Female

DRUGS (3)
  1. EFAVIRENZ [Suspect]
     Dates: start: 20020312, end: 20030717
  2. LAMIVUDINE [Suspect]
     Dates: start: 20001117, end: 20030717
  3. ABACAVIR [Suspect]
     Dates: start: 20001117, end: 20030717

REACTIONS (4)
  - DEPRESSION [None]
  - LUNG ABSCESS [None]
  - PHLEBITIS [None]
  - THROMBOCYTOPENIA [None]
